FAERS Safety Report 8213415-0 (Version None)
Quarter: 2012Q1

REPORT INFORMATION
  Report Type: 
  Country: None (occurrence: None)
  Receive Date: 20120315
  Receipt Date: 20120305
  Transmission Date: 20120608
  Serious: Yes (Hospitalization)
  Sender: FDA-Public Use
  Company Number: CA-ROCHE-1046204

PATIENT
  Sex: Female
  Weight: 59.02 kg

DRUGS (8)
  1. MABTHERA [Suspect]
     Indication: RHEUMATOID ARTHRITIS
     Route: 042
     Dates: start: 20110809, end: 20110823
  2. MABTHERA [Suspect]
     Route: 042
     Dates: start: 20110809, end: 20110823
  3. LYRICA [Concomitant]
  4. PANTOPRAZOLE SODIUM [Concomitant]
  5. METHOTREXATE [Concomitant]
  6. FLEXERIL [Concomitant]
  7. ADALAT CC [Concomitant]
  8. FOLIC ACID [Concomitant]

REACTIONS (1)
  - ANEURYSM [None]
